FAERS Safety Report 15699795 (Version 2)
Quarter: 2018Q4

REPORT INFORMATION
  Report Type: Spontaneous
  Country: CN (occurrence: CN)
  Receive Date: 20181207
  Receipt Date: 20181224
  Transmission Date: 20190205
  Serious: Yes (Other)
  Sender: FDA-Public Use
  Company Number: CN-ROCHE-2227142

PATIENT
  Age: 56 Year
  Sex: Female

DRUGS (9)
  1. HERCEPTIN [Suspect]
     Active Substance: TRASTUZUMAB
     Dosage: DAY 1
     Route: 065
     Dates: start: 20160616
  2. HERCEPTIN [Suspect]
     Active Substance: TRASTUZUMAB
     Dosage: DAY 1
     Route: 065
     Dates: start: 20170623, end: 20180207
  3. HERCEPTIN [Suspect]
     Active Substance: TRASTUZUMAB
     Dosage: DAY 1
     Route: 065
     Dates: start: 20160708
  4. HERCEPTIN [Suspect]
     Active Substance: TRASTUZUMAB
     Indication: HER-2 POSITIVE BREAST CANCER
     Dosage: DAY 1
     Route: 065
     Dates: start: 20140331, end: 20140601
  5. VINORELBINE BITARTRATE [Concomitant]
     Active Substance: VINORELBINE\VINORELBINE TARTRATE
     Dosage: DAY 1, DAY 8 AND DAY 15
     Route: 048
  6. HERCEPTIN [Suspect]
     Active Substance: TRASTUZUMAB
     Dosage: DAY 1
     Route: 065
     Dates: start: 20160731
  7. HERCEPTIN [Suspect]
     Active Substance: TRASTUZUMAB
     Dosage: DAY 1
     Route: 065
     Dates: start: 20160825, end: 20161122
  8. HERCEPTIN [Suspect]
     Active Substance: TRASTUZUMAB
     Dosage: DAY 1
     Route: 065
     Dates: start: 20170216, end: 20170602
  9. HERCEPTIN [Suspect]
     Active Substance: TRASTUZUMAB
     Dosage: DAY 1
     Route: 065
     Dates: start: 20181112

REACTIONS (10)
  - Chest discomfort [Recovering/Resolving]
  - Diarrhoea [Recovering/Resolving]
  - Pleural effusion [Recovering/Resolving]
  - Atelectasis [Unknown]
  - Pulmonary mass [Unknown]
  - Bone marrow failure [Recovering/Resolving]
  - Tachypnoea [Recovering/Resolving]
  - Neurotoxicity [Unknown]
  - Gastrointestinal disorder [Recovering/Resolving]
  - Mouth ulceration [Unknown]

NARRATIVE: CASE EVENT DATE: 201605
